FAERS Safety Report 8328314-3 (Version None)
Quarter: 2012Q2

REPORT INFORMATION
  Report Type: 
  Country: None (occurrence: None)
  Receive Date: 20120502
  Receipt Date: 20120427
  Transmission Date: 20120825
  Serious: Yes (Other)
  Sender: FDA-Public Use
  Company Number: US-PFIZER INC-2012105293

PATIENT
  Sex: Male
  Weight: 122 kg

DRUGS (4)
  1. INDOCIN [Concomitant]
     Indication: GOUT
     Dosage: 25 MG, AS NEEDED
  2. AMBIEN [Concomitant]
     Indication: SLEEP DISORDER
     Dosage: 10 MG, EVERY OTHER NIGHT
  3. TEMAZEPAM [Concomitant]
     Indication: SLEEP DISORDER
     Dosage: 30 MG, EVERY OTHER NIGHT
  4. EFFEXOR XR [Suspect]
     Indication: DEPRESSION
     Dosage: 150 MG, DAILY

REACTIONS (4)
  - DIZZINESS [None]
  - MULTIPLE SCLEROSIS [None]
  - MEMORY IMPAIRMENT [None]
  - BALANCE DISORDER [None]
